FAERS Safety Report 8345572-X (Version None)
Quarter: 2012Q2

REPORT INFORMATION
  Report Type: 
  Country: None (occurrence: None)
  Receive Date: 20120508
  Receipt Date: 20111114
  Transmission Date: 20120825
  Serious: No
  Sender: FDA-Public Use
  Company Number: US-BAUSCH-2011BL007966

PATIENT
  Age: 56 Year
  Sex: Male

DRUGS (2)
  1. ALREX [Suspect]
     Indication: OCULAR HYPERAEMIA
     Route: 047
     Dates: start: 20111114, end: 20111114
  2. ALREX [Suspect]
     Indication: DRY EYE
     Route: 047
     Dates: start: 20111114, end: 20111114

REACTIONS (1)
  - DRUG HYPERSENSITIVITY [None]
